FAERS Safety Report 6709289-7 (Version None)
Quarter: 2010Q2

REPORT INFORMATION
  Report Type: 
  Country: None (occurrence: None)
  Receive Date: 20100504
  Receipt Date: 20100429
  Transmission Date: 20101027
  Serious: Yes (Hospitalization)
  Sender: FDA-Public Use
  Company Number: US-ELI_LILLY_AND_COMPANY-US201004008170

PATIENT
  Sex: Female
  Weight: 172.34 kg

DRUGS (6)
  1. BYETTA [Suspect]
     Indication: TYPE 2 DIABETES MELLITUS
     Dosage: 5 UG, 2/D
     Route: 058
     Dates: start: 20080101, end: 20080101
  2. BYETTA [Suspect]
     Dosage: 10 UG, 2/D
     Route: 058
     Dates: start: 20080101
  3. CARDIZEM CD [Concomitant]
     Indication: CARDIAC DISORDER
     Dosage: 300 MG, DAILY (1/D)
  4. AMITRIPTYLINE HCL [Concomitant]
     Indication: ANXIETY
     Dosage: 20 MG, DAILY (1/D)
  5. LIPITOR [Concomitant]
     Indication: BLOOD CHOLESTEROL
     Dosage: 80 MG, DAILY (1/D)
  6. ROBAXIN [Concomitant]
     Indication: MUSCLE SPASMS
     Dosage: 40 MG, UNK

REACTIONS (6)
  - BLOOD GLUCOSE INCREASED [None]
  - FATIGUE [None]
  - HEART RATE INCREASED [None]
  - INCORRECT DOSE ADMINISTERED [None]
  - NEPHROLITHIASIS [None]
  - SLUGGISHNESS [None]
